FAERS Safety Report 24870953 (Version 1)
Quarter: 2025Q1

REPORT INFORMATION
  Report Type: Spontaneous
  Country: CN (occurrence: CN)
  Receive Date: 20250121
  Receipt Date: 20250121
  Transmission Date: 20250409
  Serious: Yes (Other)
  Sender: ALEXION PHARMACEUTICALS
  Company Number: CN-ASTRAZENECA-202501CHN013421CN

PATIENT
  Age: 35 Year

DRUGS (1)
  1. CRESTOR [Suspect]
     Active Substance: ROSUVASTATIN CALCIUM
     Indication: Carotid arteriosclerosis
     Dosage: 5 MILLIGRAM, QD

REACTIONS (1)
  - Myocardial necrosis marker increased [Recovering/Resolving]
